FAERS Safety Report 19109417 (Version 1)
Quarter: 2021Q2

REPORT INFORMATION
  Report Type: Other
  Country: US (occurrence: US)
  Receive Date: 20210409
  Receipt Date: 20210409
  Transmission Date: 20210717
  Serious: No
  Sender: FDA-Public Use
  Company Number: US-ROCHE-2806190

PATIENT
  Sex: Male

DRUGS (1)
  1. OCREVUS [Suspect]
     Active Substance: OCRELIZUMAB
     Indication: MULTIPLE SCLEROSIS
     Dosage: LAST DATE OF TREATMENT: 15/OCT/2020. ANTICIPATED DATE OF TREATMENT 15/APR/2021
     Route: 065
     Dates: start: 20201001

REACTIONS (2)
  - COVID-19 [Unknown]
  - Meniscus injury [Unknown]
